FAERS Safety Report 18710601 (Version 4)
Quarter: 2021Q1

REPORT INFORMATION
  Report Type: Spontaneous
  Country: GB (occurrence: GB)
  Receive Date: 20210107
  Receipt Date: 20210208
  Transmission Date: 20210419
  Serious: Yes (Hospitalization, Other)
  Sender: FDA-Public Use
  Company Number: GB-AUROBINDO-AUR-APL-2021-000229

PATIENT
  Age: 73 Year
  Sex: Female

DRUGS (24)
  1. PREGABALIN. [Suspect]
     Active Substance: PREGABALIN
     Indication: PRODUCT USED FOR UNKNOWN INDICATION
     Dosage: 75 MILLIGRAM, ONCE A DAY (ON)
     Route: 065
  2. CO?BENELDOPA [Concomitant]
     Active Substance: BENSERAZIDE HYDROCHLORIDE\LEVODOPA
     Indication: PRODUCT USED FOR UNKNOWN INDICATION
     Dosage: 8 DOSAGE FORM, ONCE A DAY
     Route: 065
  3. GENTAMICIN. [Concomitant]
     Active Substance: GENTAMICIN
     Indication: PRODUCT USED FOR UNKNOWN INDICATION
     Dosage: 260 MILLIGRAM, ONCE A DAY
     Route: 042
     Dates: start: 20200726
  4. SERTRALINE [Concomitant]
     Active Substance: SERTRALINE HYDROCHLORIDE
     Dosage: 100 MILLIGRAM, ONCE A DAY
     Route: 065
  5. MEROPENEM. [Suspect]
     Active Substance: MEROPENEM
     Indication: ENTEROBACTER BACTERAEMIA
     Dosage: 2 GRAM, 3 TIMES A DAY
     Route: 042
     Dates: start: 20200731
  6. CO?CARELDOPA [Concomitant]
     Active Substance: CARBIDOPA\LEVODOPA
     Dosage: 8 DOSAGE FORM, QD (25/100)
     Route: 065
  7. MEBEVERINE [Concomitant]
     Active Substance: MEBEVERINE
     Indication: PRODUCT USED FOR UNKNOWN INDICATION
     Dosage: 405 MILLIGRAM, ONCE A DAY
     Route: 048
  8. CIPROFLOXACIN. [Concomitant]
     Active Substance: CIPROFLOXACIN
     Indication: PRODUCT USED FOR UNKNOWN INDICATION
     Dosage: 400 MILLIGRAM, TWO TIMES A DAY (800 MILLIGRAM, ONCE A DAY)
     Route: 042
  9. SERTRALINE [Concomitant]
     Active Substance: SERTRALINE HYDROCHLORIDE
     Indication: PRODUCT USED FOR UNKNOWN INDICATION
     Dosage: 1 DOSAGE FORM, ONCE A DAY
     Route: 065
  10. DALTEPARIN [Concomitant]
     Active Substance: DALTEPARIN
     Indication: PRODUCT USED FOR UNKNOWN INDICATION
     Dosage: 5000 INTERNATIONAL UNIT, ONCE A DAY
     Route: 058
  11. SERTRALINE [Concomitant]
     Active Substance: SERTRALINE HYDROCHLORIDE
     Dosage: 2 DOSAGE FORM, (1 DOSAGE FORM, QD (50MG ON)
     Route: 065
  12. TEMOCILLIN [Concomitant]
     Active Substance: TEMOCILLIN
     Indication: PRODUCT USED FOR UNKNOWN INDICATION
     Dosage: 4 GRAM, ONCE A DAY
     Route: 042
     Dates: start: 20200727
  13. PREGABALIN. [Suspect]
     Active Substance: PREGABALIN
     Dosage: 50 MILLIGRAM, ONCE A DAY
     Route: 065
  14. ADCAL D3 [Concomitant]
     Active Substance: CALCIUM CARBONATE\CHOLECALCIFEROL
     Indication: PRODUCT USED FOR UNKNOWN INDICATION
     Dosage: 2 DOSAGE FORM, ONCE A DAY (1.5G/400UNITS)
     Route: 048
  15. CIPROFLOXACIN. [Concomitant]
     Active Substance: CIPROFLOXACIN
     Dosage: 750 MILLIGRAM, TWO TIMES A DAY (1500 MILLIGRAM, ONCE A DAY)
     Route: 048
  16. CO?CARELDOPA [Concomitant]
     Active Substance: CARBIDOPA\LEVODOPA
     Indication: PRODUCT USED FOR UNKNOWN INDICATION
     Dosage: 8 DOSAGE FORM, ONCE A DAY
     Route: 065
  17. TAZOCIN [Concomitant]
     Active Substance: PIPERACILLIN SODIUM\TAZOBACTAM SODIUM
     Indication: PRODUCT USED FOR UNKNOWN INDICATION
     Dosage: 4.5 GRAM, Q8H
     Route: 042
     Dates: start: 20200725
  18. PREGABALIN. [Concomitant]
     Active Substance: PREGABALIN
     Dosage: 50 MILLIGRAM, ONCE A DAY (OM)
     Route: 065
  19. OXYCODONE [Concomitant]
     Active Substance: OXYCODONE
     Indication: PRODUCT USED FOR UNKNOWN INDICATION
     Dosage: 20 MILLIGRAM, ONCE A DAY
     Route: 048
  20. MACROGOL [Concomitant]
     Active Substance: POLYETHYLENE GLYCOLS
     Indication: PRODUCT USED FOR UNKNOWN INDICATION
     Dosage: 2 DOSAGE FORM, ONCE A DAY
     Route: 048
  21. PARACETAMOL [Concomitant]
     Active Substance: ACETAMINOPHEN
     Indication: PRODUCT USED FOR UNKNOWN INDICATION
     Dosage: 4 GRAM, ONCE A DAY
     Route: 065
  22. PREGABALIN. [Concomitant]
     Active Substance: PREGABALIN
     Indication: PRODUCT USED FOR UNKNOWN INDICATION
     Dosage: 75 MILLIGRAM, ONCE A DAY
     Route: 065
  23. TEICOPLANIN [Concomitant]
     Active Substance: TEICOPLANIN
     Indication: PRODUCT USED FOR UNKNOWN INDICATION
     Dosage: 1200 MILLIGRAM, QD (600MG BD FOR 2/7, THEN 600MG OD)
     Route: 042
     Dates: start: 20200901, end: 20200902
  24. TEICOPLANIN [Concomitant]
     Active Substance: TEICOPLANIN
     Dosage: 600MG BD FOR 2/7, THEN 600MG OD
     Route: 042
     Dates: start: 20200903

REACTIONS (2)
  - Thrombocytosis [Recovered/Resolved]
  - Condition aggravated [Unknown]
